FAERS Safety Report 10753912 (Version 2)
Quarter: 2015Q1

REPORT INFORMATION
  Report Type: Spontaneous
  Country: US (occurrence: US)
  Receive Date: 20150202
  Receipt Date: 20150211
  Transmission Date: 20150721
  Serious: Yes (Disabling, Other)
  Sender: FDA-Public Use
  Company Number: US-LEO PHARMA-232128

PATIENT
  Age: 53 Year
  Sex: Female

DRUGS (1)
  1. PICATO [Suspect]
     Active Substance: INGENOL MEBUTATE
     Indication: PRODUCT USED FOR UNKNOWN INDICATION
     Dosage: ONCE DAILY ALL OVER FACE

REACTIONS (8)
  - Incorrect drug administration duration [Unknown]
  - Influenza like illness [Recovered/Resolved]
  - Application site pain [Recovered/Resolved]
  - Activities of daily living impaired [Recovered/Resolved]
  - Application site swelling [Recovered/Resolved]
  - Pain [Recovered/Resolved]
  - Application site erosion [Recovered/Resolved]
  - Drug administration error [Unknown]

NARRATIVE: CASE EVENT DATE: 2014
